FAERS Safety Report 15923200 (Version 2)
Quarter: 2019Q1

REPORT INFORMATION
  Report Type: Spontaneous
  Country: US (occurrence: US)
  Receive Date: 20190205
  Receipt Date: 20190219
  Transmission Date: 20190417
  Serious: No
  Sender: FDA-Public Use
  Company Number: US-ALLERGAN-1816101US

PATIENT
  Age: 73 Year
  Sex: Female

DRUGS (2)
  1. BOTOX [Suspect]
     Active Substance: ONABOTULINUMTOXINA
     Indication: SKIN WRINKLING
     Dosage: 14 UNITS, SINGLE
     Route: 030
     Dates: start: 201711, end: 201711
  2. ESTRIOL [Concomitant]
     Active Substance: ESTRIOL
     Dosage: UNK
     Route: 065

REACTIONS (2)
  - Tinnitus [Recovered/Resolved]
  - Off label use [Unknown]
